FAERS Safety Report 6548620-2 (Version None)
Quarter: 2010Q1

REPORT INFORMATION
  Report Type: 
  Country: None (occurrence: None)
  Receive Date: 20100124
  Receipt Date: 20091016
  Transmission Date: 20100710
  Serious: No
  Sender: FDA-Public Use
  Company Number: US-ALLERGAN-0913473US

PATIENT
  Age: 65 Year
  Sex: Female
  Weight: 79.819 kg

DRUGS (4)
  1. RESTASIS [Suspect]
     Indication: LACRIMATION INCREASED
     Dosage: UNK
     Route: 047
     Dates: start: 20081201
  2. LISINOPRIL [Concomitant]
     Indication: BLOOD PRESSURE
     Dosage: 5 MG, QD
  3. SIMVASTATIN [Concomitant]
     Indication: BLOOD CHOLESTEROL
     Dosage: 40 MG, QD
  4. ROPINIROLE HYDROCHLORIDE [Concomitant]
     Indication: RESTLESS LEGS SYNDROME
     Dosage: 1 MG, QHS

REACTIONS (1)
  - LACRIMATION INCREASED [None]
